FAERS Safety Report 14019449 (Version 1)
Quarter: 2017Q3

REPORT INFORMATION
  Report Type: Spontaneous
  Country: US (occurrence: US)
  Receive Date: 20170928
  Receipt Date: 20170928
  Transmission Date: 20171128
  Serious: Yes (Hospitalization, Other)
  Sender: FDA-Public Use
  Company Number: US-CIPLA (EU) LIMITED-STD201510-004226

PATIENT

DRUGS (2)
  1. LAMOTRIGINE. [Suspect]
     Active Substance: LAMOTRIGINE
     Indication: SEIZURE
     Dosage: 25 MG, UNK
     Route: 048
  2. LAMOTRIGINE. [Suspect]
     Active Substance: LAMOTRIGINE
     Dosage: 25MG, 21 TABLETS
     Route: 048

REACTIONS (6)
  - Myoclonus [Recovered/Resolved]
  - Toxicity to various agents [Unknown]
  - Agitation [Recovered/Resolved]
  - Seizure [Recovered/Resolved]
  - Crying [Recovered/Resolved]
  - Accidental overdose [Unknown]
